FAERS Safety Report 6596930-5 (Version None)
Quarter: 2010Q1

REPORT INFORMATION
  Report Type: 
  Country: None (occurrence: None)
  Receive Date: 20100222
  Receipt Date: 20100222
  Transmission Date: 20100710
  Serious: Yes (Hospitalization)
  Sender: FDA-Public Use
  Company Number: None

PATIENT
  Sex: Female
  Weight: 54.8852 kg

DRUGS (9)
  1. SUTENT [Suspect]
     Indication: BLADDER CANCER
     Dosage: 25 MG PO DAILY
     Route: 048
     Dates: start: 20091223, end: 20100119
  2. PROCHLORPERAZINE MALEATE [Concomitant]
  3. CRESTOR [Concomitant]
  4. ATENOLOL [Concomitant]
  5. COLACE [Concomitant]
  6. OXYCODONE HCL [Concomitant]
  7. PERCOCET [Concomitant]
  8. FENTANYL [Concomitant]
  9. CIPRO [Concomitant]

REACTIONS (8)
  - ABDOMINAL PAIN LOWER [None]
  - DEEP VEIN THROMBOSIS [None]
  - DIARRHOEA [None]
  - ENTEROCUTANEOUS FISTULA [None]
  - PURULENCE [None]
  - TACHYCARDIA [None]
  - VOMITING [None]
  - WOUND INFECTION [None]
